FAERS Safety Report 18071813 (Version 2)
Quarter: 2021Q1

REPORT INFORMATION
  Report Type: Spontaneous
  Country: US (occurrence: US)
  Receive Date: 20200727
  Receipt Date: 20210325
  Transmission Date: 20210419
  Serious: Yes (Death, Other)
  Sender: FDA-Public Use
  Company Number: US-ASTRAZENECA-2020SE92396

PATIENT
  Age: 844 Month
  Sex: Male
  Weight: 73.9 kg

DRUGS (76)
  1. NEXIUM [Suspect]
     Active Substance: ESOMEPRAZOLE MAGNESIUM
     Indication: GASTROOESOPHAGEAL REFLUX DISEASE
     Route: 048
     Dates: start: 2008
  2. LANTUS [Concomitant]
     Active Substance: INSULIN GLARGINE
  3. PROCHLORPER [Concomitant]
  4. ERYTHROMYCIN. [Concomitant]
     Active Substance: ERYTHROMYCIN
  5. GOLYTELY [Concomitant]
     Active Substance: POLYETHYLENE GLYCOL 3350\POTASSIUM CHLORIDE\SODIUM BICARBONATE\SODIUM CHLORIDE\SODIUM SULFATE
  6. SALINE [Concomitant]
     Active Substance: SODIUM CHLORIDE
  7. NEXIUM [Suspect]
     Active Substance: ESOMEPRAZOLE MAGNESIUM
     Indication: DYSPEPSIA
     Route: 048
     Dates: start: 2008
  8. NEXIUM [Suspect]
     Active Substance: ESOMEPRAZOLE MAGNESIUM
     Indication: GASTROOESOPHAGEAL REFLUX DISEASE
     Route: 048
     Dates: start: 2008, end: 2011
  9. METOCLOPRAMIDE. [Concomitant]
     Active Substance: METOCLOPRAMIDE
  10. HUMALOG [Concomitant]
     Active Substance: INSULIN LISPRO
  11. KETOROLAC [Concomitant]
     Active Substance: KETOROLAC TROMETHAMINE
  12. BISACODYL. [Concomitant]
     Active Substance: BISACODYL
  13. ENOXAPARIN SODIUM. [Concomitant]
     Active Substance: ENOXAPARIN SODIUM
  14. CALCIUM [Concomitant]
     Active Substance: CALCIUM
  15. NEXIUM [Suspect]
     Active Substance: ESOMEPRAZOLE MAGNESIUM
     Indication: GASTROOESOPHAGEAL REFLUX DISEASE
     Route: 048
     Dates: start: 2008
  16. NEXIUM [Suspect]
     Active Substance: ESOMEPRAZOLE MAGNESIUM
     Indication: DYSPEPSIA
     Route: 048
     Dates: start: 2008, end: 2011
  17. OMEPRAZOLE. [Suspect]
     Active Substance: OMEPRAZOLE
     Indication: GASTROOESOPHAGEAL REFLUX DISEASE
     Dosage: GENERIC
     Route: 065
     Dates: start: 2010, end: 2011
  18. MELOXICAM. [Concomitant]
     Active Substance: MELOXICAM
     Indication: ARTHRITIS
  19. XIFAXAN [Concomitant]
     Active Substance: RIFAXIMIN
  20. METRONIDAZOLE. [Concomitant]
     Active Substance: METRONIDAZOLE
  21. NOVOLOG [Concomitant]
     Active Substance: INSULIN ASPART
  22. VITAMIN C [Concomitant]
     Active Substance: ASCORBIC ACID
  23. PROCHLORPERAZINE MALEATE. [Concomitant]
     Active Substance: PROCHLORPERAZINE MALEATE
  24. NEXIUM [Suspect]
     Active Substance: ESOMEPRAZOLE MAGNESIUM
     Indication: DYSPEPSIA
     Route: 048
     Dates: start: 2008, end: 2011
  25. OMEPRAZOLE. [Suspect]
     Active Substance: OMEPRAZOLE
     Indication: DYSPEPSIA
     Dosage: GENERIC
     Route: 065
     Dates: start: 2010, end: 2011
  26. OXYCODONE/ APAP [Concomitant]
     Active Substance: ACETAMINOPHEN\OXYCODONE HYDROCHLORIDE
  27. FENTANYL. [Concomitant]
     Active Substance: FENTANYL
  28. VALACYCLOVIR [Concomitant]
     Active Substance: VALACYCLOVIR HYDROCHLORIDE
  29. FLAGYL [Concomitant]
     Active Substance: METRONIDAZOLE\METRONIDAZOLE HYDROCHLORIDE
  30. HYDRALAZINE [Concomitant]
     Active Substance: HYDRALAZINE HYDROCHLORIDE
  31. COMPAZINE [Concomitant]
     Active Substance: PROCHLORPERAZINE MALEATE
  32. FOLATE [Concomitant]
     Active Substance: FOLATE SODIUM
  33. OXALIPLATIN. [Concomitant]
     Active Substance: OXALIPLATIN
  34. NEXIUM [Suspect]
     Active Substance: ESOMEPRAZOLE MAGNESIUM
     Indication: GASTROOESOPHAGEAL REFLUX DISEASE
     Route: 048
     Dates: start: 2008, end: 2011
  35. METFORMIN [Concomitant]
     Active Substance: METFORMIN HYDROCHLORIDE
  36. AMOXICILLIN. [Concomitant]
     Active Substance: AMOXICILLIN
  37. GLIPIZIDE. [Concomitant]
     Active Substance: GLIPIZIDE
  38. HYDROMORPHONE [Concomitant]
     Active Substance: HYDROMORPHONE
  39. FUROSEMIDE. [Concomitant]
     Active Substance: FUROSEMIDE
  40. MEPERIDINE [Concomitant]
     Active Substance: MEPERIDINE
  41. NEOMYCIN. [Concomitant]
     Active Substance: NEOMYCIN
  42. GLUCAGON. [Concomitant]
     Active Substance: GLUCAGON
  43. PNEUMOVAX 23 [Concomitant]
     Active Substance: PNEUMOCOCCAL VACCINE, POLYVALENT 23
  44. SENOKOT [Concomitant]
     Active Substance: SENNOSIDES
  45. MIRALAX [Concomitant]
     Active Substance: POLYETHYLENE GLYCOL 3350
  46. LORAZEPAM. [Concomitant]
     Active Substance: LORAZEPAM
  47. MAGNESIUM OXIDE. [Concomitant]
     Active Substance: MAGNESIUM OXIDE
  48. ZINC. [Concomitant]
     Active Substance: ZINC
  49. DILAUDID [Concomitant]
     Active Substance: HYDROMORPHONE HYDROCHLORIDE
  50. BENAZEPRIL [Concomitant]
     Active Substance: BENAZEPRIL HYDROCHLORIDE
     Indication: HYPERTENSION
  51. SPIRONOLACTONE. [Concomitant]
     Active Substance: SPIRONOLACTONE
  52. VERSED [Concomitant]
     Active Substance: MIDAZOLAM HYDROCHLORIDE
  53. ONDANSETRON HYDROCHLORIDE. [Concomitant]
     Active Substance: ONDANSETRON HYDROCHLORIDE
  54. ANZEMET [Concomitant]
     Active Substance: DOLASETRON MESYLATE
  55. VITAMIN D [Concomitant]
     Active Substance: VITAMIN D NOS
  56. MAGNESIUM SULFATE. [Concomitant]
     Active Substance: MAGNESIUM SULFATE
  57. AMLODIPINE/ BENAZEPRIL [Concomitant]
     Active Substance: AMLODIPINE BESYLATE\BENAZEPRIL HYDROCHLORIDE
     Indication: HYPERTENSION
  58. AZITHROMYCIN ANHYDROUS. [Concomitant]
     Active Substance: AZITHROMYCIN ANHYDROUS
     Indication: INFECTION
  59. OXYCONTIN [Concomitant]
     Active Substance: OXYCODONE HYDROCHLORIDE
  60. DRONABINOL. [Concomitant]
     Active Substance: DRONABINOL
  61. ONDANSETRON [Concomitant]
     Active Substance: ONDANSETRON
  62. ENOXAPARIN [Concomitant]
     Active Substance: ENOXAPARIN
  63. SORBITOL. [Concomitant]
     Active Substance: SORBITOL
  64. GLUCOSE [Concomitant]
     Active Substance: DEXTROSE
  65. AMBIEN [Concomitant]
     Active Substance: ZOLPIDEM TARTRATE
  66. DEXAMETHASONE. [Concomitant]
     Active Substance: DEXAMETHASONE
  67. GEMCITABINE HYDROCHLORIDE. [Concomitant]
     Active Substance: GEMCITABINE HYDROCHLORIDE
  68. SOMA [Concomitant]
     Active Substance: CARISOPRODOL
  69. NEXIUM [Suspect]
     Active Substance: ESOMEPRAZOLE MAGNESIUM
     Indication: DYSPEPSIA
     Route: 048
     Dates: start: 2008
  70. LOVASTATIN. [Concomitant]
     Active Substance: LOVASTATIN
     Indication: BLOOD CHOLESTEROL INCREASED
  71. PROMETHAZINE [Concomitant]
     Active Substance: PROMETHAZINE HYDROCHLORIDE
  72. LOTENSIN [Concomitant]
     Active Substance: BENAZEPRIL HYDROCHLORIDE
  73. ASPIRIN. [Concomitant]
     Active Substance: ASPIRIN
  74. LATEX [Concomitant]
     Active Substance: NATURAL LATEX RUBBER
  75. DOCUSATE SODIUM. [Concomitant]
     Active Substance: DOCUSATE SODIUM
  76. METOCLOPRAMIDE HYDROCHLORIDE. [Concomitant]
     Active Substance: METOCLOPRAMIDE HYDROCHLORIDE

REACTIONS (8)
  - Diabetes mellitus [Fatal]
  - Adenocarcinoma metastatic [Fatal]
  - Pancreatic carcinoma [Unknown]
  - Normal pressure hydrocephalus [Fatal]
  - Metastases to peritoneum [Unknown]
  - Gastric cancer [Unknown]
  - Metastatic gastric cancer [Unknown]
  - Rebound acid hypersecretion [Unknown]

NARRATIVE: CASE EVENT DATE: 201009
